FAERS Safety Report 22227437 (Version 1)
Quarter: 2023Q2

REPORT INFORMATION
  Report Type: Spontaneous
  Country: US (occurrence: US)
  Receive Date: 20230419
  Receipt Date: 20230419
  Transmission Date: 20230722
  Serious: Yes (Other)
  Sender: FDA-Public Use
  Company Number: US-ROCHE-3330875

PATIENT
  Age: 76 Year
  Sex: Female

DRUGS (12)
  1. CLONAZEPAM [Suspect]
     Active Substance: CLONAZEPAM
     Indication: Product used for unknown indication
     Route: 048
  2. VENCLEXTA [Suspect]
     Active Substance: VENETOCLAX
     Indication: Myelodysplastic syndrome with multilineage dysplasia
     Dosage: TABLETS(100MG) BY MOUTH DAY 1 WITH A MEAL AND WATER AT THE SAME TIME EACH DAY?TOTAL 120 TABLETS
     Route: 048
     Dates: start: 20220524
  3. VENCLEXTA [Suspect]
     Active Substance: VENETOCLAX
     Indication: Myelodysplastic syndrome with multilineage dysplasia
     Dosage: TAKE 4 TABLETS BY MOUTH ONCE DAILY WITH MEAL AND WATER AT THE SAME TIME EACH DAY FOR 21 DAYS AND ...
     Route: 048
     Dates: start: 20230223
  4. VENCLEXTA [Suspect]
     Active Substance: VENETOCLAX
     Indication: Myelodysplastic syndrome with multilineage dysplasia
     Dosage: DAY 2?TOTAL 120 TABLETS?DAILY DOSE: 200 MILLIGRAM
     Route: 048
  5. ATORVASTATIN [Concomitant]
     Active Substance: ATORVASTATIN
     Route: 048
     Dates: start: 20210621
  6. FLUOXETINE [Concomitant]
     Active Substance: FLUOXETINE HYDROCHLORIDE
     Route: 048
     Dates: start: 20210621
  7. FOSAMAX [Concomitant]
     Active Substance: ALENDRONATE SODIUM
     Route: 048
     Dates: start: 20210621
  8. NIFEDIPINE [Concomitant]
     Active Substance: NIFEDIPINE
     Dosage: EXTENDED RELEASE 24 HR
     Route: 048
     Dates: start: 20210621
  9. ALPRAZOLAM [Concomitant]
     Active Substance: ALPRAZOLAM
     Indication: Anxiety
     Dosage: EVERY 8  HOURS AS NEEDED?MORE  THAN A 7 DAY SUPPLY IS MEDICALLY NECESSARY
     Route: 048
     Dates: start: 20230303
  10. DILAUDID [Concomitant]
     Active Substance: HYDROMORPHONE HYDROCHLORIDE
     Dosage: 60 MINUTES PRIOR TO PROCEDURE
     Route: 048
     Dates: start: 20221128
  11. MECLIZINE [Concomitant]
     Active Substance: MECLIZINE HYDROCHLORIDE
     Indication: Vertigo
     Route: 048
     Dates: start: 20230303
  12. ONDANSETRON HYDROCHLORIDE [Concomitant]
     Active Substance: ONDANSETRON HYDROCHLORIDE
     Indication: Nausea
     Dosage: AS NEEDED FOR NAUSEA
     Route: 048
     Dates: start: 20230313

REACTIONS (2)
  - Road traffic accident [Unknown]
  - Drug hypersensitivity [Unknown]
